FAERS Safety Report 10061536 (Version 1)
Quarter: 2014Q2

REPORT INFORMATION
  Report Type: Spontaneous
  Country: US (occurrence: US)
  Receive Date: 20140407
  Receipt Date: 20140407
  Transmission Date: 20141212
  Serious: No
  Sender: FDA-Public Use
  Company Number: US-009507513-1404USA002041

PATIENT
  Age: 27 Year
  Sex: Female
  Weight: 57.6 kg

DRUGS (1)
  1. NEXPLANON [Suspect]
     Indication: CONTRACEPTION
     Dosage: 1 ROD , EVERY 3 YEARS
     Route: 059
     Dates: start: 20131017

REACTIONS (3)
  - Menstruation irregular [Unknown]
  - Amenorrhoea [Recovered/Resolved]
  - Menstrual disorder [Unknown]
